FAERS Safety Report 4610664-5 (Version None)
Quarter: 2005Q1

REPORT INFORMATION
  Report Type: 
  Country: None (occurrence: None)
  Receive Date: 20050228
  Receipt Date: 20040420
  Transmission Date: 20050727
  Serious: Yes (Other)
  Sender: FDA-Public Use
  Company Number: 200403403

PATIENT
  Sex: Male

DRUGS (3)
  1. ACULAR [Suspect]
  2. ANTIBIOTICS [Concomitant]
  3. STEROID [Concomitant]

REACTIONS (1)
  - CORNEAL ULCER [None]
